FAERS Safety Report 25483636 (Version 1)
Quarter: 2025Q2

REPORT INFORMATION
  Report Type: Spontaneous
  Country: US (occurrence: US)
  Receive Date: 20250626
  Receipt Date: 20250626
  Transmission Date: 20250717
  Serious: Yes (Other)
  Sender: BAYER HEALTHCARE PHARMACEUTICALS INC.
  Company Number: US-BAYER-2025A083580

PATIENT
  Age: 87 Year
  Sex: Female

DRUGS (2)
  1. CIPROFLOXACIN [Suspect]
     Active Substance: CIPROFLOXACIN
  2. BRUKINSA [Suspect]
     Active Substance: ZANUBRUTINIB
     Indication: B-cell lymphoma
     Dosage: 80 MG, BID
     Route: 048
     Dates: start: 20250201

REACTIONS (6)
  - Colitis [None]
  - Drug hypersensitivity [None]
  - Rash [None]
  - Dehydration [None]
  - Blood potassium decreased [None]
  - Product dose omission issue [None]
